FAERS Safety Report 14948821 (Version 1)
Quarter: 2018Q2

REPORT INFORMATION
  Report Type: Spontaneous
  Country: US (occurrence: US)
  Receive Date: 20180529
  Receipt Date: 20180529
  Transmission Date: 20180711
  Serious: Yes (Hospitalization, Other)
  Sender: FDA-Public Use
  Company Number: US-SHIRE-US201819593

PATIENT
  Sex: Male

DRUGS (2)
  1. GATTEX [Suspect]
     Active Substance: TEDUGLUTIDE\WATER
     Indication: MALABSORPTION
     Dosage: 2.72 MG, 1X/DAY:QD
     Route: 058
     Dates: start: 20171117
  2. GATTEX [Suspect]
     Active Substance: TEDUGLUTIDE\WATER
     Indication: SHORT-BOWEL SYNDROME

REACTIONS (5)
  - Abdominal distension [Unknown]
  - Administration site bruise [Unknown]
  - Diarrhoea [Unknown]
  - Abdominal pain [Unknown]
  - Osteomyelitis [Unknown]
